FAERS Safety Report 4659798-X (Version None)
Quarter: 2005Q2

REPORT INFORMATION
  Report Type: 
  Country: None (occurrence: None)
  Receive Date: 20050510
  Receipt Date: 20050425
  Transmission Date: 20051028
  Serious: Yes (Hospitalization)
  Sender: FDA-Public Use
  Company Number: 213369

PATIENT
  Age: 63 Year
  Sex: Female
  Weight: 70 kg

DRUGS (15)
  1. AVASTIN [Suspect]
     Indication: NEUROENDOCRINE CARCINOMA
     Dosage: 5 MG/KG, DAYS 1 + 15, INTRAVENOUS
     Route: 042
     Dates: start: 20041130, end: 20050308
  2. TEMOZOLOMIDE (TEMOZOLOMIDE) [Suspect]
     Indication: NEUROENDOCRINE CARCINOMA
     Dosage: 150 MG/M2, QD, ORAL
     Route: 048
     Dates: start: 20041130, end: 20050314
  3. BACTRIM [Suspect]
     Indication: PNEUMOCYSTIS JIROVECI PNEUMONIA
     Dosage: 2 TABLETS, TID
  4. SENNA (SENNA) [Concomitant]
  5. ASPIRIN [Concomitant]
  6. ATIVAN [Concomitant]
  7. DECADRON SRC [Concomitant]
  8. PRILOSEC [Concomitant]
  9. TORADOL [Concomitant]
  10. COLACE (DOCUSATE SODIUM) [Concomitant]
  11. PREVACID [Concomitant]
  12. HAWTHORN BERRIES (CRATEGUS) [Concomitant]
  13. COENZYME Q10 [Concomitant]
  14. ZOMETA [Concomitant]
  15. LACTULOSE [Concomitant]

REACTIONS (13)
  - ANOREXIA [None]
  - BLOOD SODIUM DECREASED [None]
  - DECREASED INTEREST [None]
  - DEHYDRATION [None]
  - DEPRESSION [None]
  - DISTURBANCE IN ATTENTION [None]
  - HYPOMAGNESAEMIA [None]
  - INTERSTITIAL LUNG DISEASE [None]
  - NAUSEA [None]
  - PANCYTOPENIA [None]
  - PNEUMOCYSTIS JIROVECI PNEUMONIA [None]
  - REFUSAL OF TREATMENT BY PATIENT [None]
  - SOMNOLENCE [None]
